FAERS Safety Report 12173015 (Version 1)
Quarter: 2016Q1

REPORT INFORMATION
  Report Type: Spontaneous
  Country: US (occurrence: US)
  Receive Date: 20160311
  Receipt Date: 20160311
  Transmission Date: 20160526
  Serious: Yes (Congenital Anomaly)
  Sender: FDA-Public Use
  Company Number: US-TEVA-643268USA

PATIENT
  Sex: Female
  Weight: 93.84 kg

DRUGS (2)
  1. METHOTREXATE [Suspect]
     Active Substance: METHOTREXATE
     Route: 065
     Dates: start: 2003, end: 201311
  2. METHOTREXATE [Suspect]
     Active Substance: METHOTREXATE
     Dates: start: 20140121

REACTIONS (2)
  - Gilbert^s syndrome [Unknown]
  - Blood bilirubin increased [Unknown]
